FAERS Safety Report 12862732 (Version 3)
Quarter: 2017Q1

REPORT INFORMATION
  Report Type: Spontaneous
  Country: JP (occurrence: JP)
  Receive Date: 20161019
  Receipt Date: 20170217
  Transmission Date: 20170428
  Serious: Yes (Life-Threatening, Other)
  Sender: FDA-Public Use
  Company Number: JP-BAYER-2016-201307

PATIENT
  Age: 25 Year
  Sex: Female
  Weight: 45.99 kg

DRUGS (2)
  1. YAZ [Suspect]
     Active Substance: DROSPIRENONE\ETHINYL ESTRADIOL
     Indication: DYSMENORRHOEA
     Dosage: UNK
     Route: 048
     Dates: start: 20150622, end: 20151126
  2. MIRENA [Suspect]
     Active Substance: LEVONORGESTREL
     Indication: MENORRHAGIA
     Dosage: 20 MCG/24HR, CONT
     Route: 015
     Dates: start: 20160405

REACTIONS (7)
  - Arrhythmia [Recovering/Resolving]
  - Left ventricular dysfunction [None]
  - Fibrin D dimer increased [None]
  - Abdominal pain lower [Not Recovered/Not Resolved]
  - Dyspnoea [Recovering/Resolving]
  - Venous thrombosis limb [None]
  - Aortic valve incompetence [None]

NARRATIVE: CASE EVENT DATE: 201511
